FAERS Safety Report 4983098-1 (Version None)
Quarter: 2006Q2

REPORT INFORMATION
  Report Type: 
  Country: None (occurrence: None)
  Receive Date: 20060426
  Receipt Date: 20060418
  Transmission Date: 20061013
  Serious: Yes (Other)
  Sender: FDA-Public Use
  Company Number: DE-JNJFOC-20060305477

PATIENT
  Sex: Female

DRUGS (4)
  1. DURAGESIC-100 [Suspect]
     Indication: DRUG USE FOR UNKNOWN INDICATION
     Dosage: 14TH PATCH
     Route: 062
  2. VOMEX [Concomitant]
     Route: 048
  3. VOMEX [Concomitant]
     Route: 048
  4. NEXIUM [Concomitant]
     Route: 048

REACTIONS (10)
  - ASTHENIA [None]
  - CHILLS [None]
  - DIZZINESS [None]
  - DRUG EFFECT DECREASED [None]
  - FLATULENCE [None]
  - GASTRITIS [None]
  - HEADACHE [None]
  - HYPERHIDROSIS [None]
  - NAUSEA [None]
  - VERTIGO [None]
